FAERS Safety Report 5058341-3 (Version None)
Quarter: 2006Q2

REPORT INFORMATION
  Report Type: 
  Country: None (occurrence: None)
  Receive Date: 20060627
  Receipt Date: 20051019
  Transmission Date: 20061013
  Serious: No
  Sender: FDA-Public Use
  Company Number: 422061

PATIENT
  Age: 38 Year
  Sex: Female
  Weight: 59 kg

DRUGS (5)
  1. XELODA [Suspect]
     Indication: COLON CANCER
     Dosage: 2 PER DAY ORAL
     Route: 048
     Dates: start: 20010615, end: 20050915
  2. IRINOTECAN HCL [Concomitant]
  3. HYDROCHLOROTHIAZIDE [Concomitant]
  4. METHOTREXATE [Concomitant]
  5. PREDNISONE TAB [Concomitant]

REACTIONS (2)
  - BLISTER [None]
  - ULCER [None]
